FAERS Safety Report 10566274 (Version 1)
Quarter: 2014Q4

REPORT INFORMATION
  Report Type: Spontaneous
  Country: CZ (occurrence: CZ)
  Receive Date: 20141105
  Receipt Date: 20141105
  Transmission Date: 20150529
  Serious: Yes (Hospitalization, Other)
  Sender: FDA-Public Use
  Company Number: CZ-BAYER-2014-158575

PATIENT
  Age: 63 Year
  Sex: Female
  Weight: 76 kg

DRUGS (1)
  1. STIVARGA [Suspect]
     Active Substance: REGORAFENIB
     Indication: COLON CANCER STAGE IV
     Dosage: 40 MG, QID
     Route: 048
     Dates: start: 20140925, end: 20141006

REACTIONS (2)
  - Hyperthyroidism [Not Recovered/Not Resolved]
  - Encephalopathy [Unknown]

NARRATIVE: CASE EVENT DATE: 20141006
